FAERS Safety Report 26121657 (Version 1)
Quarter: 2025Q4

REPORT INFORMATION
  Report Type: Spontaneous
  Country: US (occurrence: US)
  Receive Date: 20251204
  Receipt Date: 20251204
  Transmission Date: 20260117
  Serious: Yes (Hospitalization)
  Sender: MYLAN
  Company Number: US-MYLANLABS-2025M1103278

PATIENT
  Age: 43 Year
  Sex: Female

DRUGS (12)
  1. PRAZOSIN [Suspect]
     Active Substance: PRAZOSIN
     Indication: Phaeochromocytoma
     Dosage: 2 MILLIGRAM, BID
  2. PRAZOSIN [Suspect]
     Active Substance: PRAZOSIN
     Dosage: 2 MILLIGRAM, BID
     Route: 065
  3. PRAZOSIN [Suspect]
     Active Substance: PRAZOSIN
     Dosage: 2 MILLIGRAM, BID
     Route: 065
  4. PRAZOSIN [Suspect]
     Active Substance: PRAZOSIN
     Dosage: 2 MILLIGRAM, BID
  5. ESCITALOPRAM [Suspect]
     Active Substance: ESCITALOPRAM OXALATE
     Indication: Anxiety
     Dosage: 10 MILLIGRAM, QD
  6. ESCITALOPRAM [Suspect]
     Active Substance: ESCITALOPRAM OXALATE
     Dosage: 10 MILLIGRAM, QD
     Route: 065
  7. ESCITALOPRAM [Suspect]
     Active Substance: ESCITALOPRAM OXALATE
     Dosage: 10 MILLIGRAM, QD
     Route: 065
  8. ESCITALOPRAM [Suspect]
     Active Substance: ESCITALOPRAM OXALATE
     Dosage: 10 MILLIGRAM, QD
  9. LORAZEPAM [Suspect]
     Active Substance: LORAZEPAM
     Indication: Anxiety
     Dosage: 0.5 MILLIGRAM, TID (THRICE A DAY AS NEEDED)
  10. LORAZEPAM [Suspect]
     Active Substance: LORAZEPAM
     Dosage: 0.5 MILLIGRAM, TID (THRICE A DAY AS NEEDED)
     Route: 065
  11. LORAZEPAM [Suspect]
     Active Substance: LORAZEPAM
     Dosage: 0.5 MILLIGRAM, TID (THRICE A DAY AS NEEDED)
     Route: 065
  12. LORAZEPAM [Suspect]
     Active Substance: LORAZEPAM
     Dosage: 0.5 MILLIGRAM, TID (THRICE A DAY AS NEEDED)

REACTIONS (2)
  - Drug ineffective for unapproved indication [Unknown]
  - Product use in unapproved indication [Unknown]
